FAERS Safety Report 6112484-1 (Version None)
Quarter: 2009Q1

REPORT INFORMATION
  Report Type: 
  Country: None (occurrence: None)
  Receive Date: 20090312
  Receipt Date: 20090306
  Transmission Date: 20090719
  Serious: Yes (Other)
  Sender: FDA-Public Use
  Company Number: NL-JNJFOC-20090102065

PATIENT
  Sex: Male
  Weight: 115 kg

DRUGS (6)
  1. RISPERDAL CONSTA [Suspect]
     Indication: DRUG USE FOR UNKNOWN INDICATION
     Route: 030
  2. CIPRAMIL [Concomitant]
  3. PROMETAZINE [Concomitant]
  4. AKINETON [Concomitant]
  5. LAMICTAL [Concomitant]
  6. TEMAZEPAM [Concomitant]

REACTIONS (6)
  - BLOOD PROLACTIN INCREASED [None]
  - DRUG LEVEL DECREASED [None]
  - EXTRAPYRAMIDAL DISORDER [None]
  - OVERWEIGHT [None]
  - SCHIZOAFFECTIVE DISORDER [None]
  - SLEEP DISORDER [None]
